FAERS Safety Report 5692310-5 (Version None)
Quarter: 2008Q1

REPORT INFORMATION
  Report Type: 
  Country: None (occurrence: None)
  Receive Date: 20080331
  Receipt Date: 20080314
  Transmission Date: 20080703
  Serious: Yes (Hospitalization)
  Sender: FDA-Public Use
  Company Number: 8031051

PATIENT
  Age: 11 Year
  Sex: Male

DRUGS (1)
  1. METHYLPHENIDATE HCL [Suspect]
     Dosage: 20 MG 1/D
     Dates: start: 20070901

REACTIONS (3)
  - HEADACHE [None]
  - LYME DISEASE [None]
  - VOMITING [None]
